FAERS Safety Report 7972705-7 (Version None)
Quarter: 2011Q4

REPORT INFORMATION
  Report Type: 
  Country: None (occurrence: None)
  Receive Date: 20111213
  Receipt Date: 20111012
  Transmission Date: 20120403
  Serious: Yes (Other)
  Sender: FDA-Public Use
  Company Number: US-ROCHE-1002686

PATIENT
  Sex: Female

DRUGS (12)
  1. FLU SHOT [Concomitant]
  2. AMLODIPINE [Concomitant]
     Route: 048
  3. TRAZODONE HCL [Concomitant]
     Route: 048
  4. IRON [Concomitant]
     Route: 048
  5. MS CONTIN [Concomitant]
     Indication: BACK PAIN
     Route: 048
  6. EFFEXOR XR [Concomitant]
     Indication: DEPRESSION
     Route: 048
  7. ZANAFLEX [Concomitant]
     Indication: MUSCLE RELAXANT THERAPY
     Route: 048
  8. AUGMENTIN [Concomitant]
  9. LYRICA [Concomitant]
     Indication: FIBROMYALGIA
     Route: 048
  10. STEROID INJECTION (UNK INGREDIENTS) [Concomitant]
  11. XOLAIR [Suspect]
     Indication: ASTHMA
     Route: 058
     Dates: start: 20110401, end: 20110930
  12. PREVACID [Concomitant]
     Route: 048

REACTIONS (1)
  - ANAPHYLACTIC REACTION [None]
